FAERS Safety Report 9802068 (Version 1)
Quarter: 2014Q1

REPORT INFORMATION
  Report Type: Spontaneous
  Country: US (occurrence: US)
  Receive Date: 20140107
  Receipt Date: 20140107
  Transmission Date: 20141002
  Serious: No
  Sender: FDA-Public Use
  Company Number: US-BIOGENIDEC-2013BI124438

PATIENT
  Sex: Female

DRUGS (7)
  1. TECFIDERA [Suspect]
     Indication: MULTIPLE SCLEROSIS
     Route: 048
     Dates: start: 20130724
  2. BACLOFEN [Concomitant]
  3. DOCUSATE SODIUM [Concomitant]
  4. GABAPENTIN [Concomitant]
  5. KLOR CON M20 [Concomitant]
  6. PAXIL [Concomitant]
  7. VALIUM [Concomitant]

REACTIONS (2)
  - Palpitations [Unknown]
  - Malaise [Unknown]
